FAERS Safety Report 9718183 (Version 1)
Quarter: 2013Q4

REPORT INFORMATION
  Report Type: Spontaneous
  Country: US (occurrence: US)
  Receive Date: 20131125
  Receipt Date: 20131125
  Transmission Date: 20140711
  Serious: No
  Sender: FDA-Public Use
  Company Number: US-VIVUS-2013V1000076

PATIENT
  Age: 49 Year
  Sex: Female
  Weight: 99.88 kg

DRUGS (2)
  1. QSYMIA 7.5MG/46MG [Suspect]
     Indication: WEIGHT INCREASED
     Route: 048
     Dates: start: 20130123, end: 20130125
  2. HYDROCHLOROTHIAZIDE [Concomitant]
     Indication: HYPERTENSION
     Dates: start: 2008

REACTIONS (3)
  - Vertigo [Not Recovered/Not Resolved]
  - Dizziness [Not Recovered/Not Resolved]
  - Inappropriate schedule of drug administration [Recovered/Resolved]
